FAERS Safety Report 8649026 (Version 2)
Quarter: 2013Q2

REPORT INFORMATION
  Report Type: Spontaneous
  Country: FR (occurrence: FR)
  Receive Date: 20120704
  Receipt Date: 20130424
  Transmission Date: 20140414
  Serious: Yes (Hospitalization, Other)
  Sender: FDA-Public Use
  Company Number: PHHY2012FR055980

PATIENT
  Age: 28 Year
  Sex: Female

DRUGS (3)
  1. GILENYA [Suspect]
     Indication: MULTIPLE SCLEROSIS
     Dosage: 0.5 MG, QD
     Route: 048
     Dates: start: 20120416, end: 20120426
  2. TYSABRI [Suspect]
     Indication: MULTIPLE SCLEROSIS
     Dosage: 300 MG, QMO
     Route: 042
     Dates: start: 20080422, end: 20120125
  3. AVONEX [Suspect]
     Indication: MULTIPLE SCLEROSIS
     Dosage: UNK UKN, UNK
     Dates: start: 200501, end: 200804

REACTIONS (10)
  - Immune reconstitution inflammatory syndrome [Unknown]
  - Condition aggravated [Unknown]
  - Vomiting [Not Recovered/Not Resolved]
  - Nausea [Unknown]
  - Headache [Not Recovered/Not Resolved]
  - Dizziness [Not Recovered/Not Resolved]
  - Abnormal behaviour [Unknown]
  - Weight decreased [Unknown]
  - Depression [Unknown]
  - Quality of life decreased [Unknown]
